FAERS Safety Report 24412708 (Version 2)
Quarter: 2025Q4

REPORT INFORMATION
  Report Type: Report from Study
  Country: US (occurrence: US)
  Receive Date: 20241008
  Receipt Date: 20251002
  Transmission Date: 20260118
  Serious: Yes (Hospitalization)
  Sender: UCB
  Company Number: US-UCBSA-2024050626

PATIENT
  Age: 59 Year
  Sex: Female

DRUGS (1)
  1. BRIVARACETAM [Suspect]
     Active Substance: BRIVARACETAM
     Indication: Seizure
     Dosage: 100 MILLIGRAM, 2X/DAY (BID)

REACTIONS (9)
  - Fall [Not Recovered/Not Resolved]
  - Skull fracture [Not Recovered/Not Resolved]
  - Seizure [Not Recovered/Not Resolved]
  - Rib fracture [Unknown]
  - Concussion [Unknown]
  - Head injury [Unknown]
  - Fatigue [Unknown]
  - Stress [Unknown]
  - Malaise [Unknown]

NARRATIVE: CASE EVENT DATE: 20240927
